FAERS Safety Report 7880670-6 (Version None)
Quarter: 2011Q4

REPORT INFORMATION
  Report Type: 
  Country: None (occurrence: None)
  Receive Date: 20111101
  Receipt Date: 20111024
  Transmission Date: 20120403
  Serious: Yes (Other)
  Sender: FDA-Public Use
  Company Number: DE-US-EMD SERONO, INC.-7087182

PATIENT
  Sex: Female

DRUGS (4)
  1. LYRICA [Concomitant]
  2. FLUOXETINE [Concomitant]
  3. REBIF [Suspect]
     Indication: MULTIPLE SCLEROSIS
     Route: 058
     Dates: start: 20050707
  4. ALPRAZOLAM [Concomitant]

REACTIONS (2)
  - HEPATIC NEOPLASM [None]
  - LIVER DISORDER [None]
